FAERS Safety Report 12289587 (Version 1)
Quarter: 2016Q2

REPORT INFORMATION
  Report Type: Spontaneous
  Country: US (occurrence: US)
  Receive Date: 20160421
  Receipt Date: 20160421
  Transmission Date: 20160815
  Serious: Yes (Other)
  Sender: FDA-Public Use
  Company Number: US-PROCTER+GAMBLE-GS16048532

PATIENT
  Sex: Male

DRUGS (1)
  1. CHILDRENS PEPTO [Suspect]
     Active Substance: CALCIUM CARBONATE
     Dosage: UNK
     Route: 048
     Dates: start: 20160410, end: 201604

REACTIONS (7)
  - Rash erythematous [Recovered/Resolved]
  - Hypersensitivity [Recovered/Resolved]
  - Sneezing [Recovered/Resolved]
  - Wheezing [Recovered/Resolved]
  - Anaphylactic shock [Recovered/Resolved]
  - Nasal pruritus [Recovered/Resolved]
  - Nasal congestion [Recovered/Resolved]

NARRATIVE: CASE EVENT DATE: 20160410
